FAERS Safety Report 7654171-4 (Version None)
Quarter: 2011Q3

REPORT INFORMATION
  Report Type: 
  Country: None (occurrence: None)
  Receive Date: 20110803
  Receipt Date: 20110803
  Transmission Date: 20111222
  Serious: Yes (Hospitalization)
  Sender: FDA-Public Use
  Company Number: PHHO2007DE19377

PATIENT
  Sex: Male
  Weight: 112 kg

DRUGS (4)
  1. NEORAL [Suspect]
     Indication: CORNEAL OPERATION
     Dosage: 300 MG/DAY
     Route: 048
     Dates: end: 20051223
  2. SIMULECT [Suspect]
     Dosage: 20 MG, ONCE/SINGLE
     Route: 048
     Dates: start: 20051223, end: 20051223
  3. MINOCYCLINE HCL [Concomitant]
  4. SIMULECT [Suspect]
     Indication: CORNEAL TRANSPLANT
     Dosage: 20 MG, ONCE/SINGLE
     Route: 048
     Dates: start: 20051220, end: 20051220

REACTIONS (2)
  - BLOOD CREATININE INCREASED [None]
  - RENAL FAILURE [None]
